FAERS Safety Report 5773340-1 (Version None)
Quarter: 2008Q2

REPORT INFORMATION
  Report Type: 
  Country: None (occurrence: None)
  Receive Date: 20080616
  Receipt Date: 20080604
  Transmission Date: 20081010
  Serious: Yes (Other)
  Sender: FDA-Public Use
  Company Number: PHHY2008BE09901

PATIENT
  Sex: Female

DRUGS (4)
  1. TRILEPTAL [Suspect]
     Indication: EPILEPSY
     Dosage: 600 MG, BID
     Dates: start: 20071001
  2. TRILEPTAL [Suspect]
     Dosage: 750 MG, BID
     Dates: start: 20080401
  3. KEPPRA [Concomitant]
     Indication: EPILEPSY
     Dosage: 200 MG, BID
  4. FEMOSTON [Concomitant]

REACTIONS (2)
  - HYPERALDOSTERONISM [None]
  - HYPONATRAEMIA [None]
